FAERS Safety Report 7247596-2 (Version None)
Quarter: 2011Q1

REPORT INFORMATION
  Report Type: 
  Country: None (occurrence: None)
  Receive Date: 20110127
  Receipt Date: 20110125
  Transmission Date: 20110831
  Serious: Yes (Life-Threatening)
  Sender: FDA-Public Use
  Company Number: NL-ROCHE-755480

PATIENT
  Sex: Female

DRUGS (1)
  1. RIVOTRIL [Suspect]
     Indication: AGITATION
     Dosage: FREQUENCY: QD
     Route: 048
     Dates: start: 20030301, end: 20100820

REACTIONS (1)
  - DISSOCIATIVE DISORDER [None]
